FAERS Safety Report 18626976 (Version 2)
Quarter: 2020Q4

REPORT INFORMATION
  Report Type: Report from Study
  Country: US (occurrence: US)
  Receive Date: 20201217
  Receipt Date: 20201223
  Transmission Date: 20210114
  Serious: Yes (Other)
  Sender: FDA-Public Use
  Company Number: US-TAKEDA-2018TUS019870

PATIENT
  Age: 64 Year
  Sex: Male

DRUGS (8)
  1. VEDOLIZUMAB [Suspect]
     Active Substance: VEDOLIZUMAB
     Indication: COLITIS ULCERATIVE
     Dosage: 300 MILLIGRAM
     Route: 042
     Dates: start: 20160620
  2. FOLIC ACID. [Concomitant]
     Active Substance: FOLIC ACID
     Dosage: UNK
  3. LOSARTAN. [Concomitant]
     Active Substance: LOSARTAN
     Indication: BLOOD PRESSURE INCREASED
     Dosage: UNK
  4. BASAGLAR [Concomitant]
     Active Substance: INSULIN GLARGINE
     Indication: TYPE 2 DIABETES MELLITUS
     Dosage: UNK
     Route: 050
  5. HUMALOG [Concomitant]
     Active Substance: INSULIN LISPRO
     Indication: TYPE 2 DIABETES MELLITUS
     Dosage: UNK
     Route: 050
  6. CRESTOR [Concomitant]
     Active Substance: ROSUVASTATIN CALCIUM
     Dosage: UNK
  7. VEDOLIZUMAB [Suspect]
     Active Substance: VEDOLIZUMAB
     Dosage: 300 MILLIGRAM, Q4WEEKS
     Route: 042
  8. ASPIRIN                            /00002701/ [Concomitant]
     Active Substance: ASPIRIN
     Dosage: 81 MILLIGRAM

REACTIONS (8)
  - Abdominal pain upper [Not Recovered/Not Resolved]
  - Pulmonary resection [Unknown]
  - Discomfort [Not Recovered/Not Resolved]
  - Frequent bowel movements [Recovered/Resolved]
  - Myocardial infarction [Unknown]
  - Colitis ulcerative [Recovered/Resolved]
  - Large intestine polyp [Unknown]
  - Off label use [Unknown]

NARRATIVE: CASE EVENT DATE: 20160902
